FAERS Safety Report 26112433 (Version 1)
Quarter: 2025Q4

REPORT INFORMATION
  Report Type: Spontaneous
  Country: EU (occurrence: EU)
  Receive Date: 20251202
  Receipt Date: 20251202
  Transmission Date: 20260117
  Serious: Yes (Other)
  Sender: MYLAN
  Company Number: EU-MYLANLABS-2025M1101681

PATIENT
  Age: 10 Year
  Sex: Female

DRUGS (4)
  1. SORAFENIB [Suspect]
     Active Substance: SORAFENIB
     Indication: Renal cell carcinoma stage III
     Dosage: UNK, RECEIVED MULTIPLE CYCLES
  2. SORAFENIB [Suspect]
     Active Substance: SORAFENIB
     Dosage: UNK, RECEIVED MULTIPLE CYCLES
     Route: 065
  3. SORAFENIB [Suspect]
     Active Substance: SORAFENIB
     Dosage: UNK, RECEIVED MULTIPLE CYCLES
     Route: 065
  4. SORAFENIB [Suspect]
     Active Substance: SORAFENIB
     Dosage: UNK, RECEIVED MULTIPLE CYCLES

REACTIONS (3)
  - Viral rash [Unknown]
  - Respiratory syncytial virus infection [Unknown]
  - Off label use [Unknown]
